FAERS Safety Report 24664343 (Version 1)
Quarter: 2024Q4

REPORT INFORMATION
  Report Type: Spontaneous
  Country: US (occurrence: None)
  Receive Date: 20241125
  Receipt Date: 20241125
  Transmission Date: 20250114
  Serious: Yes (Other)
  Sender: Public
  Company Number: None

PATIENT
  Age: 78 Year
  Sex: Female
  Weight: 91.35 kg

DRUGS (17)
  1. AMOXICILLIN\CLAVULANATE POTASSIUM [Suspect]
     Active Substance: AMOXICILLIN\CLAVULANATE POTASSIUM
     Dates: start: 20241111, end: 20241123
  2. AZITHROMYCIN [Suspect]
     Active Substance: AZITHROMYCIN
  3. PREDNISONE [Suspect]
     Active Substance: PREDNISONE
  4. LEVAQUIN [Suspect]
     Active Substance: LEVOFLOXACIN
  5. MONTELUKAST SODIUM [Concomitant]
     Active Substance: MONTELUKAST\MONTELUKAST SODIUM
  6. JARDIANCE [Concomitant]
     Active Substance: EMPAGLIFLOZIN
  7. SPIRONOLACTONE [Concomitant]
     Active Substance: SPIRONOLACTONE
  8. BENZONATATE [Concomitant]
     Active Substance: BENZONATATE
  9. OZEMPIC [Concomitant]
     Active Substance: SEMAGLUTIDE
  10. LEVOCETIRIZINE [Concomitant]
     Active Substance: LEVOCETIRIZINE
  11. ROSUVASTATIN CALCIUM [Concomitant]
     Active Substance: ROSUVASTATIN CALCIUM
  12. FLUTICASONE PROPIONATE [Concomitant]
     Active Substance: FLUTICASONE PROPIONATE
  13. ALBUTEROL SULFATE [Concomitant]
     Active Substance: ALBUTEROL SULFATE
  14. AZELASTINE [Concomitant]
     Active Substance: AZELASTINE
  15. NM-6603 [Concomitant]
     Active Substance: NM-6603
  16. CALCIUM CITRATE [Concomitant]
     Active Substance: CALCIUM CITRATE
  17. CHOLECALCIFEROL [Concomitant]
     Active Substance: CHOLECALCIFEROL

REACTIONS (1)
  - Tendon injury [None]

NARRATIVE: CASE EVENT DATE: 20241124
